FAERS Safety Report 9432270 (Version 1)
Quarter: 2013Q3

REPORT INFORMATION
  Report Type: Spontaneous
  Country: US (occurrence: US)
  Receive Date: 20130731
  Receipt Date: 20130731
  Transmission Date: 20140515
  Serious: Yes (Other)
  Sender: FDA-Public Use
  Company Number: PHHY2013US078559

PATIENT
  Age: 61 Year
  Sex: Female

DRUGS (4)
  1. ACETYLSALICYLIC ACID [Suspect]
     Indication: ANTIPLATELET THERAPY
  2. FIORINAL (ASPIRIN CAFFEINE BUTALBITAL) [Interacting]
     Indication: ANTIPLATELET THERAPY
  3. PLAVIX [Interacting]
     Indication: ANTIPLATELET THERAPY
  4. DESVENLAFAXINE [Interacting]
     Indication: DEPRESSION

REACTIONS (5)
  - Spontaneous haematoma [Unknown]
  - Coagulopathy [Unknown]
  - Pain [Unknown]
  - Contusion [Unknown]
  - Drug interaction [Unknown]
